FAERS Safety Report 14924234 (Version 1)
Quarter: 2018Q2

REPORT INFORMATION
  Report Type: Spontaneous
  Country: DE (occurrence: DE)
  Receive Date: 20180522
  Receipt Date: 20180522
  Transmission Date: 20180711
  Serious: Yes (Hospitalization, Other)
  Sender: FDA-Public Use
  Company Number: DE-PFIZER INC-2018203972

PATIENT
  Age: 56 Year
  Sex: Male
  Weight: 100 kg

DRUGS (2)
  1. FOLSAEURE [Concomitant]
     Active Substance: FOLIC ACID
     Dosage: 5 MG, WEEKLY
  2. METHOTREXATE SODIUM. [Suspect]
     Active Substance: METHOTREXATE SODIUM
     Dosage: UNK, WEEKLY

REACTIONS (2)
  - Thrombosis [Unknown]
  - Embolism [Unknown]
